FAERS Safety Report 11146347 (Version 2)
Quarter: 2015Q2

REPORT INFORMATION
  Report Type: Spontaneous
  Country: US (occurrence: US)
  Receive Date: 20150528
  Receipt Date: 20150616
  Transmission Date: 20150821
  Serious: No
  Sender: FDA-Public Use
  Company Number: US-PFIZER INC-2015171895

PATIENT
  Age: 70 Year
  Sex: Female

DRUGS (2)
  1. IBRANCE [Suspect]
     Active Substance: PALBOCICLIB
     Dosage: 125 MG, CYCLIC, 2 WEEKS ON AND 1 WEEK OFF
     Dates: start: 20150604
  2. IBRANCE [Suspect]
     Active Substance: PALBOCICLIB
     Indication: BREAST CANCER
     Dosage: 125 MG, CYCLIC 21 DAYS ON, THEN 7 DAYS OFF
     Dates: start: 20150510

REACTIONS (8)
  - Musculoskeletal chest pain [Unknown]
  - Paraesthesia [Unknown]
  - Weight increased [Unknown]
  - Scar pain [Unknown]
  - Musculoskeletal pain [Unknown]
  - Increased appetite [Unknown]
  - White blood cell count decreased [Unknown]
  - Arthralgia [Unknown]

NARRATIVE: CASE EVENT DATE: 20150512
